FAERS Safety Report 13339360 (Version 1)
Quarter: 2017Q1

REPORT INFORMATION
  Report Type: Spontaneous
  Country: US (occurrence: US)
  Receive Date: 20170315
  Receipt Date: 20170315
  Transmission Date: 20170428
  Serious: Yes (Other)
  Sender: FDA-Public Use
  Company Number: US-BAYER-2017-043928

PATIENT
  Sex: Male
  Weight: 77 kg

DRUGS (5)
  1. ALKA-SELTZER HEARTBURN PLUS GAS RELIEFCHEWS TROPICAL PUNCH [Suspect]
     Active Substance: CALCIUM CARBONATE\DIMETHICONE
     Dosage: 14-20 DF, UNK
     Route: 048
     Dates: start: 201611
  2. CITRACAL CALCIUM PEARLS - BERRY AND CREAM [Suspect]
     Active Substance: CALCIUM\CHOLECALCIFEROL
     Dosage: 7-10 DF, QD
     Route: 048
  3. ONE A DAY VITACRAVES CHEWY CHOCOLATE BROWNIE [Suspect]
     Active Substance: MINERALS\VITAMINS
     Dosage: 7-10 DF, QD
     Route: 048
  4. CITRACAL [Suspect]
     Active Substance: CALCIUM CITRATE
     Dosage: 7-10 DF, QD
     Route: 048
  5. ONE A DAY ESSENTIAL [Suspect]
     Active Substance: VITAMINS
     Dosage: 7-10 DF, QD
     Route: 048

REACTIONS (3)
  - Product use issue [Unknown]
  - Intentional overdose [Unknown]
  - Drug dependence [Unknown]
